FAERS Safety Report 5175395-4 (Version None)
Quarter: 2006Q4

REPORT INFORMATION
  Report Type: 
  Country: None (occurrence: None)
  Receive Date: 20061215
  Receipt Date: 20061207
  Transmission Date: 20070319
  Serious: Yes (Hospitalization)
  Sender: FDA-Public Use
  Company Number: US-BRISTOL-MYERS SQUIBB COMPANY-13605332

PATIENT
  Age: 79 Year
  Sex: Female
  Weight: 54 kg

DRUGS (10)
  1. CETUXIMAB [Suspect]
     Indication: CERVIX CARCINOMA
     Route: 042
     Dates: start: 20061019, end: 20061026
  2. CISPLATIN [Suspect]
     Indication: CERVIX CARCINOMA
     Dates: start: 20061019, end: 20061026
  3. RADIATION THERAPY [Concomitant]
     Indication: CERVIX CARCINOMA
     Dates: start: 20061003, end: 20061003
  4. LISINOPRIL AND HYDROCHLOROTHIAZIDE [Concomitant]
     Route: 048
  5. OXYCODONE HCL + ACETAMINOPHEN [Concomitant]
     Indication: PAIN
  6. FAMOTIDINE [Concomitant]
     Route: 048
  7. POTASSIUM CHLORIDE [Concomitant]
     Route: 048
  8. APREPITANT [Concomitant]
     Route: 048
     Dates: start: 20061026
  9. DEXAMETHASONE [Concomitant]
     Route: 048
     Dates: start: 20061026, end: 20061028
  10. CIPROFLOXACIN [Concomitant]
     Route: 048
     Dates: start: 20061020, end: 20061020

REACTIONS (9)
  - ABDOMINAL PAIN UPPER [None]
  - ASTHENIA [None]
  - DIARRHOEA [None]
  - HOSPITALISATION [None]
  - NAUSEA [None]
  - NEUTROPENIA [None]
  - PLATELET COUNT DECREASED [None]
  - STAPHYLOCOCCAL INFECTION [None]
  - WHITE BLOOD CELL COUNT DECREASED [None]
